FAERS Safety Report 9943104 (Version 2)
Quarter: 2014Q2

REPORT INFORMATION
  Report Type: Spontaneous
  Country: PT (occurrence: PT)
  Receive Date: 20140303
  Receipt Date: 20140424
  Transmission Date: 20141212
  Serious: Yes (Other)
  Sender: FDA-Public Use
  Company Number: PT-ACTAVIS-2014-03216

PATIENT
  Age: 40 Year
  Sex: Female
  Weight: 70 kg

DRUGS (2)
  1. DOCETAXEL ACTAVIS [Suspect]
     Indication: BREAST NEOPLASM
     Dosage: 170 MG, EVERY 21 DAYS
     Route: 040
     Dates: start: 20131127, end: 20131218
  2. DEXAMETASONA                       /00016001/ [Concomitant]
     Indication: PREMEDICATION
     Dosage: UNK;8MG TABLETS (DOSAGE IS UNKNOWN)
     Route: 048
     Dates: start: 20131127

REACTIONS (5)
  - Dyspnoea [Recovered/Resolved]
  - Erythema [Recovered/Resolved]
  - Abdominal pain [Recovered/Resolved]
  - Chest discomfort [Recovered/Resolved]
  - Feeling hot [Recovered/Resolved]
